FAERS Safety Report 8313160-7 (Version None)
Quarter: 2012Q2

REPORT INFORMATION
  Report Type: 
  Country: None (occurrence: None)
  Receive Date: 20120424
  Receipt Date: 20120409
  Transmission Date: 20120825
  Serious: Yes (Hospitalization)
  Sender: FDA-Public Use
  Company Number: 1254549

PATIENT
  Age: 16 Year
  Sex: Female

DRUGS (2)
  1. TOBRAMYCIN [Suspect]
     Indication: PRODUCT USED FOR UNKNOWN INDICATION
     Dosage: 500 MG MILLIGRAM(S), INTRAVENOUS (NOT OTHERWISE SPECIFIED)
     Route: 042
     Dates: start: 20120319, end: 20120321
  2. MEROPENEM [Concomitant]

REACTIONS (5)
  - PYREXIA [None]
  - ARTHRALGIA [None]
  - PAIN [None]
  - FEELING ABNORMAL [None]
  - OEDEMA PERIPHERAL [None]
